FAERS Safety Report 26193052 (Version 1)
Quarter: 2025Q4

REPORT INFORMATION
  Report Type: Spontaneous
  Country: US (occurrence: US)
  Receive Date: 20251223
  Receipt Date: 20251223
  Transmission Date: 20260118
  Serious: No
  Sender: TAKEDA
  Company Number: US-TAKEDA-2025TUS116041

PATIENT
  Sex: Male

DRUGS (2)
  1. ENTYVIO [Suspect]
     Active Substance: VEDOLIZUMAB
     Indication: Product used for unknown indication
  2. ENTYVIO [Suspect]
     Active Substance: VEDOLIZUMAB

REACTIONS (2)
  - Product dose omission issue [Unknown]
  - Injection site discharge [Unknown]

NARRATIVE: CASE EVENT DATE: 20251214
